FAERS Safety Report 16171592 (Version 1)
Quarter: 2019Q2

REPORT INFORMATION
  Report Type: Report from Study
  Country: US (occurrence: US)
  Receive Date: 20190408
  Receipt Date: 20190408
  Transmission Date: 20190711
  Serious: Yes (Hospitalization)
  Sender: FDA-Public Use
  Company Number: US-ACTELION-A-NJ2019-186191

PATIENT
  Sex: Female

DRUGS (1)
  1. OPSUMIT [Suspect]
     Active Substance: MACITENTAN
     Indication: PULMONARY ARTERIAL HYPERTENSION
     Dosage: 10 MG, UNK
     Route: 048
     Dates: start: 20190206

REACTIONS (6)
  - Nasal congestion [Unknown]
  - Fluid overload [Unknown]
  - Oedema [Recovering/Resolving]
  - Condition aggravated [Unknown]
  - Dyspnoea [Recovering/Resolving]
  - Fluid retention [Recovering/Resolving]
